FAERS Safety Report 6372149-8 (Version None)
Quarter: 2009Q3

REPORT INFORMATION
  Report Type: 
  Country: None (occurrence: None)
  Receive Date: 20090917
  Receipt Date: 20090904
  Transmission Date: 20100115
  Serious: Yes (Other)
  Sender: FDA-Public Use
  Company Number: ADR16102009

PATIENT
  Age: 66 Year
  Sex: Male

DRUGS (4)
  1. CITALOPRAM HYDROBROMIDE [Suspect]
     Indication: DEPRESSION
     Dosage: ORAL USE
     Route: 048
  2. ATENOLOL [Concomitant]
  3. LACIDIPINE [Concomitant]
  4. SIMVASTATIN [Concomitant]

REACTIONS (2)
  - FULL BLOOD COUNT DECREASED [None]
  - MEAN CELL VOLUME INCREASED [None]
